FAERS Safety Report 9575230 (Version 1)
Quarter: 2013Q4

REPORT INFORMATION
  Report Type: Spontaneous
  Country: US (occurrence: US)
  Receive Date: 20131001
  Receipt Date: 20131001
  Transmission Date: 20140711
  Serious: Yes (Death)
  Sender: FDA-Public Use
  Company Number: US-GLAXOSMITHKLINE-A1043366A

PATIENT
  Age: 70 Year
  Sex: Female

DRUGS (1)
  1. VOTRIENT [Suspect]
     Indication: SARCOMA
     Dosage: 200MG UNKNOWN
     Route: 065
     Dates: start: 20121106

REACTIONS (1)
  - Death [Fatal]
